FAERS Safety Report 4335172-0 (Version None)
Quarter: 2004Q2

REPORT INFORMATION
  Report Type: 
  Country: None (occurrence: None)
  Receive Date: 20040408
  Receipt Date: 20040330
  Transmission Date: 20050107
  Serious: Yes (Hospitalization)
  Sender: FDA-Public Use
  Company Number: FR-BRISTOL-MYERS SQUIBB COMPANY-12553723

PATIENT
  Age: 45 Year
  Sex: Female

DRUGS (3)
  1. HOLOXAN [Suspect]
     Indication: CERVIX CANCER METASTATIC
     Route: 042
     Dates: start: 20040301
  2. UROMITEXAN [Suspect]
     Indication: CERVIX CANCER METASTATIC
     Dates: start: 20040301
  3. CISPLATIN [Concomitant]

REACTIONS (3)
  - BLOOD CREATININE INCREASED [None]
  - BLOOD UREA INCREASED [None]
  - RENAL FAILURE ACUTE [None]
